FAERS Safety Report 8235642 (Version 2)
Quarter: 2017Q3

REPORT INFORMATION
  Report Type: Spontaneous
  Country: DE (occurrence: DE)
  Receive Date: 20111108
  Receipt Date: 20170728
  Transmission Date: 20171128
  Serious: Yes (Hospitalization)
  Sender: FDA-Public Use
  Company Number: GXKR2011DE003230

PATIENT

DRUGS (8)
  1. CARBAMAZEPINE. [Suspect]
     Active Substance: CARBAMAZEPINE
     Indication: PRODUCT USED FOR UNKNOWN INDICATION
     Dosage: 1-1-0
     Route: 048
     Dates: start: 200903
  2. RISPERIDONE. [Suspect]
     Active Substance: RISPERIDONE
     Dosage: 1-0-1
     Route: 048
     Dates: start: 200903
  3. THIORIDAZINE ^NEURAXPHARM^ [Suspect]
     Active Substance: THIORIDAZINE HYDROCHLORIDE
     Dosage: 1-1-1
     Route: 048
     Dates: start: 200711
  4. CEFUROXIME. [Suspect]
     Active Substance: CEFUROXIME
     Indication: BRONCHITIS
     Route: 048
     Dates: start: 20110208
  5. AKINETON [Suspect]
     Active Substance: BIPERIDEN HYDROCHLORIDE
     Dosage: 1/2-0-1/2
     Route: 048
     Dates: start: 200504
  6. LAMOTRIGINE. [Suspect]
     Active Substance: LAMOTRIGINE
     Dosage: 1-0-2
     Route: 048
     Dates: start: 201006
  7. TAXILAN (PERAZINE) [Suspect]
     Active Substance: PERAZINE
     Dosage: 1-0-2
     Route: 048
     Dates: start: 201009
  8. LORAZEPAM. [Suspect]
     Active Substance: LORAZEPAM
     Dosage: 3 X 1
     Route: 048
     Dates: start: 201006

REACTIONS (3)
  - Acute kidney injury [Recovered/Resolved]
  - Acute hepatic failure [Recovered/Resolved]
  - Thrombocytopenia [Recovered/Resolved]

NARRATIVE: CASE EVENT DATE: 20110211
